FAERS Safety Report 11284062 (Version 1)
Quarter: 2015Q3

REPORT INFORMATION
  Report Type: Spontaneous
  Country: US (occurrence: US)
  Receive Date: 20150720
  Receipt Date: 20150720
  Transmission Date: 20151125
  Serious: No
  Sender: FDA-Public Use
  Company Number: US-BAUSCH-BL-2015-016508

PATIENT
  Sex: Female
  Weight: 59.02 kg

DRUGS (2)
  1. PROLENSA [Suspect]
     Active Substance: BROMFENAC SODIUM
     Route: 047
     Dates: start: 2015, end: 201506
  2. PROLENSA [Suspect]
     Active Substance: BROMFENAC SODIUM
     Indication: POSTOPERATIVE CARE
     Route: 047
     Dates: start: 20150401, end: 2015

REACTIONS (4)
  - Joint swelling [Not Recovered/Not Resolved]
  - Nausea [Not Recovered/Not Resolved]
  - Dry eye [Not Recovered/Not Resolved]
  - Eyelid margin crusting [Not Recovered/Not Resolved]

NARRATIVE: CASE EVENT DATE: 2015
